FAERS Safety Report 16444650 (Version 1)
Quarter: 2019Q3

REPORT INFORMATION
  Report Type: Spontaneous
  Country: US (occurrence: US)
  Receive Date: 20190618
  Receipt Date: 20190618
  Transmission Date: 20191004
  Serious: Yes (Hospitalization)
  Sender: FDA-Public Use
  Company Number: None

PATIENT
  Age: 35 Year
  Sex: Female

DRUGS (7)
  1. ZOLPIDEM 10MG TABLETS [Concomitant]
     Dates: start: 20190611
  2. TELMISARTAN/HCTZ 80/25MG [Concomitant]
     Dates: start: 20190422
  3. FOLIC ACID 1000MCG TABLETS [Concomitant]
     Dates: start: 20190107
  4. METHOTREXATE 2.5MG TABLETS [Concomitant]
     Active Substance: METHOTREXATE
     Dates: start: 20190503
  5. FLUCONAZOLE 150MG TABLETS [Concomitant]
     Dates: start: 20190516
  6. ENBREL [Suspect]
     Active Substance: ETANERCEPT
     Indication: RHEUMATOID ARTHRITIS
     Dosage: ?          OTHER FREQUENCY:EVERY WEEK;?
     Route: 058
     Dates: start: 20190124
  7. POTASSIUM CL MICRO 20 MEQ ER TABLETS [Concomitant]
     Dates: start: 20190118

REACTIONS (2)
  - Malaise [None]
  - Therapy cessation [None]

NARRATIVE: CASE EVENT DATE: 20190520
